FAERS Safety Report 4921351-8 (Version None)
Quarter: 2006Q1

REPORT INFORMATION
  Report Type: 
  Country: None (occurrence: None)
  Receive Date: 20060222
  Receipt Date: 20060222
  Transmission Date: 20060701
  Serious: Yes (Hospitalization, Other)
  Sender: FDA-Public Use
  Company Number: None

PATIENT
  Sex: Male
  Weight: 88.45 kg

DRUGS (2)
  1. LOVENOX [Suspect]
     Indication: ADENOCARCINOMA PANCREAS
     Dosage: 520 MG
     Dates: start: 20060110, end: 20060118
  2. COUMADIN [Concomitant]

REACTIONS (6)
  - ABDOMINAL PAIN [None]
  - ATRIAL FIBRILLATION [None]
  - DIARRHOEA [None]
  - FEBRILE NEUTROPENIA [None]
  - PROTHROMBIN TIME PROLONGED [None]
  - RECTAL HAEMORRHAGE [None]
